FAERS Safety Report 7261707-4 (Version None)
Quarter: 2011Q1

REPORT INFORMATION
  Report Type: 
  Country: None (occurrence: None)
  Receive Date: 20110130
  Receipt Date: 20101024
  Transmission Date: 20110831
  Serious: No
  Sender: FDA-Public Use
  Company Number: US-ABBOTT-10P-163-0680935-00

PATIENT
  Age: 63 Year
  Sex: Female

DRUGS (8)
  1. FISH OIL [Concomitant]
     Indication: MEDICAL DIET
  2. MTX [Concomitant]
     Indication: PSORIATIC ARTHROPATHY
     Dosage: FOUR 2.5MG TABLETS WEEKLY
  3. ASPIRIN [Concomitant]
     Indication: ATRIAL FIBRILLATION
  4. FOLIC ACID [Concomitant]
     Indication: VITAMIN SUPPLEMENTATION
  5. PREMARIN [Concomitant]
     Indication: HORMONE REPLACEMENT THERAPY
  6. ESTRACE [Concomitant]
     Indication: HORMONE REPLACEMENT THERAPY
  7. MULTI-VITAMIN [Concomitant]
     Indication: VITAMIN SUPPLEMENTATION
  8. HUMIRA [Suspect]
     Indication: PSORIATIC ARTHROPATHY
     Dates: start: 20071001

REACTIONS (3)
  - LOCALISED INFECTION [None]
  - PAIN [None]
  - RASH PAPULAR [None]
